FAERS Safety Report 7782551-5 (Version None)
Quarter: 2011Q3

REPORT INFORMATION
  Report Type: 
  Country: None (occurrence: None)
  Receive Date: 20110928
  Receipt Date: 20110915
  Transmission Date: 20111222
  Serious: Yes (Other)
  Sender: FDA-Public Use
  Company Number: CA-ELI_LILLY_AND_COMPANY-CA201107004666

PATIENT
  Age: 44 Year
  Sex: Female

DRUGS (2)
  1. HUMALOG [Suspect]
     Indication: DIABETES MELLITUS
     Dosage: UNK, PRN
  2. NOVORAPID [Concomitant]
     Indication: DIABETES MELLITUS

REACTIONS (9)
  - READING DISORDER [None]
  - ANEURYSM [None]
  - ASTIGMATISM [None]
  - COGNITIVE DISORDER [None]
  - PAIN [None]
  - SPEECH DISORDER [None]
  - BRAIN INJURY [None]
  - VISUAL IMPAIRMENT [None]
  - DISTURBANCE IN ATTENTION [None]
